FAERS Safety Report 9611833 (Version 1)
Quarter: 2013Q4

REPORT INFORMATION
  Report Type: Report from Study
  Country: PL (occurrence: PL)
  Receive Date: 20131010
  Receipt Date: 20131010
  Transmission Date: 20140711
  Serious: Yes (Other)
  Sender: FDA-Public Use
  Company Number: PHHY2013PL111489

PATIENT
  Age: 70 Year
  Sex: Male

DRUGS (5)
  1. CERTICAN [Suspect]
     Indication: IMMUNOSUPPRESSION
     Dosage: UNK
  2. MYFORTIC [Suspect]
     Indication: IMMUNOSUPPRESSION
     Dosage: 1440 MG, UNK
  3. EQUORAL [Concomitant]
     Dosage: 100 MG, BID
  4. CELLCEPT [Concomitant]
     Dosage: UNK
  5. ENCORTON [Concomitant]
     Dosage: 5 MG, UNK

REACTIONS (6)
  - Pulmonary mass [Unknown]
  - Chest X-ray abnormal [Unknown]
  - Renal impairment [Unknown]
  - Renal transplant failure [Unknown]
  - Renal failure chronic [Unknown]
  - Diarrhoea [Unknown]
